FAERS Safety Report 6405018-5 (Version None)
Quarter: 2009Q4

REPORT INFORMATION
  Report Type: 
  Country: None (occurrence: None)
  Receive Date: 20091013
  Receipt Date: 20090923
  Transmission Date: 20100525
  Serious: Yes (Hospitalization, Other)
  Sender: FDA-Public Use
  Company Number: AUR-APL-2009-00717

PATIENT
  Age: 9 Year
  Sex: Female

DRUGS (9)
  1. FLUOXETINE [Suspect]
     Indication: DEPRESSION
     Dosage: 5MG, DAILY,
  2. STAVUDINE [Suspect]
     Indication: HIV INFECTION
  3. LAMIVUDINE [Suspect]
     Indication: HIV INFECTION
  4. RITONAVIR [Suspect]
     Indication: HIV INFECTION
  5. LOPINAVIR [Suspect]
     Indication: HIV INFECTION
  6. RIFAMPICIN [Suspect]
     Indication: TUBERCULOSIS
  7. ISONIAZID [Suspect]
     Indication: TUBERCULOSIS
  8. PYRAZINAMIDE [Suspect]
     Indication: TUBERCULOSIS
  9. ETHIONAMIDE [Suspect]
     Indication: TUBERCULOSIS

REACTIONS (12)
  - CATATONIA [None]
  - CONSCIOUSNESS FLUCTUATING [None]
  - DELIRIUM [None]
  - DELUSION [None]
  - DEPRESSION [None]
  - DRUG INTERACTION [None]
  - EUPHORIC MOOD [None]
  - FEAR [None]
  - GENERAL PHYSICAL HEALTH DETERIORATION [None]
  - HYPERVIGILANCE [None]
  - SEROTONIN SYNDROME [None]
  - SOMNOLENCE [None]
